FAERS Safety Report 5040277-5 (Version None)
Quarter: 2006Q2

REPORT INFORMATION
  Report Type: 
  Country: None (occurrence: None)
  Receive Date: 20060630
  Receipt Date: 20060623
  Transmission Date: 20061013
  Serious: Yes (Hospitalization, Other)
  Sender: FDA-Public Use
  Company Number: US-JNJFOC-20051005745

PATIENT
  Sex: Female

DRUGS (3)
  1. RISPERDAL [Suspect]
  2. RISPERDAL [Suspect]
  3. RISPERDAL [Suspect]
     Indication: ABNORMAL BEHAVIOUR

REACTIONS (5)
  - DIABETES MELLITUS INSULIN-DEPENDENT [None]
  - DYSTONIA [None]
  - PHARYNGITIS [None]
  - SINUSITIS [None]
  - TONSILLITIS [None]
